FAERS Safety Report 9132688 (Version 1)
Quarter: 2013Q1

REPORT INFORMATION
  Report Type: Spontaneous
  Country: NL (occurrence: NL)
  Receive Date: 20130301
  Receipt Date: 20130301
  Transmission Date: 20140127
  Serious: Yes (Other)
  Sender: FDA-Public Use
  Company Number: NL-ROCHE-1195611

PATIENT
  Age: 75 Year
  Sex: Male
  Weight: 72 kg

DRUGS (3)
  1. RIVOTRIL [Suspect]
     Indication: TRIGEMINAL NEURALGIA
     Dosage: 3 TIMES A DAY 1 PIECE (S)
     Route: 048
     Dates: start: 20120627
  2. LAMOTRIGINE [Concomitant]
     Dosage: 1 TIME PER DAY 3 PIECE(S)
     Route: 048
     Dates: start: 20120424, end: 201209
  3. CARBAMAZEPINE [Concomitant]
     Dosage: 3 TIMES A DAY 1 PIECE
     Route: 048
     Dates: start: 201203

REACTIONS (5)
  - Disorientation [Recovered/Resolved with Sequelae]
  - Amnesia [Recovered/Resolved with Sequelae]
  - Balance disorder [Recovered/Resolved with Sequelae]
  - Aphasia [Recovered/Resolved with Sequelae]
  - Dementia [Recovered/Resolved with Sequelae]
